FAERS Safety Report 5679945-0 (Version None)
Quarter: 2008Q1

REPORT INFORMATION
  Report Type: 
  Country: None (occurrence: None)
  Receive Date: 20080324
  Receipt Date: 20080320
  Transmission Date: 20080703
  Serious: Yes (Death, Hospitalization, Other)
  Sender: FDA-Public Use
  Company Number: 2008-00963

PATIENT
  Age: 77 Year
  Sex: Male
  Weight: 52.9 kg

DRUGS (2)
  1. VELCADE [Suspect]
     Indication: MULTIPLE MYELOMA
     Dosage: 1.30 MG/M2, INTRAVENOUS
     Route: 042
     Dates: start: 20070605, end: 20070605
  2. FUROSEMIDE [Concomitant]

REACTIONS (3)
  - MYOCARDIAL INFARCTION [None]
  - STUPOR [None]
  - UNRESPONSIVE TO STIMULI [None]
